FAERS Safety Report 5794402-9 (Version None)
Quarter: 2008Q2

REPORT INFORMATION
  Report Type: 
  Country: None (occurrence: None)
  Receive Date: 20080623
  Receipt Date: 20080606
  Transmission Date: 20081010
  Serious: Yes (Hospitalization)
  Sender: FDA-Public Use
  Company Number: THYM-1000686

PATIENT
  Age: 25 Year
  Sex: Male
  Weight: 79 kg

DRUGS (4)
  1. THYMOGLOBULIN [Suspect]
     Indication: STEM CELL TRANSPLANT
     Dosage: 235 MG, QD, INTRAVENOUS
     Route: 042
     Dates: start: 20070120, end: 20070123
  2. FLUDARABINE        (FLUDARABINE PHOSPHATE) [Suspect]
     Indication: STEM CELL TRANSPLANT
     Dosage: 100 MG, QD, ORAL
     Route: 048
     Dates: start: 20080114, end: 20080120
  3. BUSULPHAN       (BUSULFAN) [Suspect]
     Indication: STEM CELL TRANSPLANT
     Dosage: 248 MG, QD, INTRAVENOUS
     Route: 042
     Dates: start: 20070117, end: 20070119
  4. CAMPATH [Suspect]
     Indication: T-CELL DEPLETION
     Dosage: 20 MG, ONCE, INTRAVENOUS
     Route: 042
     Dates: start: 20070124, end: 20070124

REACTIONS (2)
  - EPSTEIN-BARR VIRUS INFECTION [None]
  - LYMPHADENOPATHY [None]
